FAERS Safety Report 23087670 (Version 1)
Quarter: 2023Q4

REPORT INFORMATION
  Report Type: Spontaneous
  Country: US (occurrence: US)
  Receive Date: 20231020
  Receipt Date: 20231020
  Transmission Date: 20240109
  Serious: No
  Sender: FDA-Public Use
  Company Number: US-GSK-US2023AMR144880

PATIENT
  Sex: Female

DRUGS (1)
  1. LAMICTAL [Suspect]
     Active Substance: LAMOTRIGINE
     Indication: Seizure
     Dosage: UNK

REACTIONS (6)
  - Diarrhoea [Unknown]
  - Breath holding [Unknown]
  - Bruxism [Unknown]
  - Rett syndrome [Unknown]
  - Insomnia [Unknown]
  - Drug ineffective [Unknown]
